FAERS Safety Report 18536875 (Version 1)
Quarter: 2020Q4

REPORT INFORMATION
  Report Type: Spontaneous
  Country: US (occurrence: US)
  Receive Date: 20201123
  Receipt Date: 20201123
  Transmission Date: 20210114
  Serious: No
  Sender: FDA-Public Use
  Company Number: US-PERRIGO-19US013934

PATIENT
  Age: 24 Year
  Sex: Female
  Weight: 48.98 kg

DRUGS (1)
  1. POLYETHYLENE GLYCOL 3350. [Suspect]
     Active Substance: POLYETHYLENE GLYCOL 3350
     Indication: CONSTIPATION
     Dosage: 17 G, TWICE IN 6 OR 7 HOURS
     Route: 048
     Dates: start: 20191112, end: 20191112

REACTIONS (4)
  - Vomiting [Recovered/Resolved]
  - Drug ineffective [Unknown]
  - Extra dose administered [Recovered/Resolved]
  - Maternal exposure during pregnancy [Recovered/Resolved]

NARRATIVE: CASE EVENT DATE: 20191112
